FAERS Safety Report 4336026-6 (Version None)
Quarter: 2004Q2

REPORT INFORMATION
  Report Type: 
  Country: None (occurrence: None)
  Receive Date: 20040406
  Receipt Date: 20040326
  Transmission Date: 20050107
  Serious: Yes (Hospitalization)
  Sender: FDA-Public Use
  Company Number: 2004206683FR

PATIENT
  Age: 82 Year
  Sex: Female
  Weight: 62 kg

DRUGS (6)
  1. ALDACTONE [Suspect]
     Indication: CARDIOMYOPATHY
     Dosage: 1 DF, QD, ORAL
     Route: 048
     Dates: end: 20031009
  2. ATROVENT [Concomitant]
  3. PULMICORT [Concomitant]
  4. ZYRTEC [Concomitant]
  5. CORDARONE [Concomitant]
  6. CLOBETASOL (CLOBETASOL) [Concomitant]

REACTIONS (3)
  - DERMATITIS BULLOUS [None]
  - RASH PRURITIC [None]
  - TOXIC SKIN ERUPTION [None]
